FAERS Safety Report 5178215-7 (Version None)
Quarter: 2006Q4

REPORT INFORMATION
  Report Type: 
  Country: None (occurrence: None)
  Receive Date: 20061218
  Receipt Date: 20060828
  Transmission Date: 20070319
  Serious: No
  Sender: FDA-Public Use
  Company Number: US-AMGEN-KDL191515

PATIENT
  Sex: Female

DRUGS (2)
  1. ENBREL [Suspect]
     Indication: PSORIATIC ARTHROPATHY
     Route: 058
     Dates: start: 20010201
  2. ARAVA [Concomitant]
     Dates: start: 20040101, end: 20060101

REACTIONS (3)
  - PSORIATIC ARTHROPATHY [None]
  - SINUSITIS [None]
  - WHITE BLOOD CELL COUNT DECREASED [None]
